FAERS Safety Report 8532904-2 (Version None)
Quarter: 2012Q3

REPORT INFORMATION
  Report Type: 
  Country: None (occurrence: None)
  Receive Date: 20120711
  Receipt Date: 20120615
  Transmission Date: 20120928
  Serious: Yes (Hospitalization)
  Sender: FDA-Public Use
  Company Number: 12-491

PATIENT
  Age: 89 Year
  Sex: Female

DRUGS (5)
  1. AMLODIPINE [Concomitant]
  2. MOXONIDINE [Concomitant]
  3. IBUPROFEN [Suspect]
     Dosage: ORAL
     Route: 048
     Dates: start: 20120501, end: 20120508
  4. DOXAZOSIN MESYLATE [Concomitant]
  5. CO-AMILOFRUSE [Concomitant]

REACTIONS (3)
  - ANAEMIA [None]
  - GASTRIC ULCER HAEMORRHAGE [None]
  - MELAENA [None]
